FAERS Safety Report 17409302 (Version 1)
Quarter: 2020Q1

REPORT INFORMATION
  Report Type: Spontaneous
  Country: US (occurrence: US)
  Receive Date: 20200212
  Receipt Date: 20200212
  Transmission Date: 20200409
  Serious: No
  Sender: FDA-Public Use
  Company Number: US-PFIZER INC-2020060751

PATIENT
  Age: 73 Year
  Sex: Male
  Weight: 74.84 kg

DRUGS (2)
  1. CELECOXIB. [Suspect]
     Active Substance: CELECOXIB
     Indication: NEURALGIA
     Dosage: UNK
     Route: 048
     Dates: start: 20200206
  2. CELECOXIB. [Suspect]
     Active Substance: CELECOXIB
     Indication: ARTHRALGIA

REACTIONS (5)
  - Arthritis [Unknown]
  - Product dispensing error [Unknown]
  - Condition aggravated [Unknown]
  - Product substitution issue [Unknown]
  - Neuralgia [Unknown]

NARRATIVE: CASE EVENT DATE: 20200206
